FAERS Safety Report 7076374 (Version 3)
Quarter: 2012Q4

REPORT INFORMATION
  Report Type: 
  Country: BR (occurrence: BR)
  Receive Date: 20090810
  Receipt Date: 20120924
  Transmission Date: 20130627
  Serious: Yes (Hospitalization, Other)
  Sender: FDA-Public Use
  Company Number: BR-PFIZER INC-2009248921

PATIENT
  Age: 57 Year
  Sex: Female
  Weight: 80 kg

DRUGS (6)
  1. CITALOR [Suspect]
     Indication: ANGINA PECTORIS
     Dosage: 10 mg, 1x/day
     Route: 048
     Dates: start: 1996
  2. CITALOR [Suspect]
     Indication: BLOOD CHOLESTEROL ABNORMAL
  3. DILACORON [Concomitant]
     Dosage: UNK
  4. SUSTRATE [Concomitant]
     Dosage: UNK
  5. ZOLOFT [Concomitant]
  6. A.A.S. [Concomitant]
     Dosage: UNK

REACTIONS (3)
  - Gastrointestinal carcinoma [Recovering/Resolving]
  - Urinary incontinence [Not Recovered/Not Resolved]
  - Drug dispensing error [Unknown]
